FAERS Safety Report 9414998 (Version 1)
Quarter: 2013Q3

REPORT INFORMATION
  Report Type: Spontaneous
  Country: US (occurrence: US)
  Receive Date: 20130723
  Receipt Date: 20130723
  Transmission Date: 20140515
  Serious: Yes (Hospitalization)
  Sender: FDA-Public Use
  Company Number: US-SANOFI-AVENTIS-2013SA072858

PATIENT
  Age: 63 Year
  Sex: Male

DRUGS (1)
  1. ALLEGRA-D [Suspect]
     Indication: SINUS DISORDER
     Dosage: DOSE:60/120 MG
     Route: 048

REACTIONS (2)
  - Sinus disorder [Unknown]
  - Medication residue present [Unknown]
